FAERS Safety Report 21092170 (Version 1)
Quarter: 2022Q3

REPORT INFORMATION
  Report Type: Spontaneous
  Country: FR (occurrence: FR)
  Receive Date: 20220718
  Receipt Date: 20220718
  Transmission Date: 20221027
  Serious: Yes (Hospitalization, Other)
  Sender: FDA-Public Use
  Company Number: FR-AFSSAPS-TS20221576

PATIENT
  Age: 72 Year
  Sex: Male
  Weight: 85 kg

DRUGS (4)
  1. LIDOCAINE [Suspect]
     Active Substance: LIDOCAINE
     Indication: Postoperative analgesia
     Dosage: 80 MILLIGRAM, EVERY HOUR
     Route: 042
     Dates: start: 20220611, end: 20220611
  2. KETAMINE [Suspect]
     Active Substance: KETAMINE
     Indication: Postoperative analgesia
     Dosage: 4 MILLIGRAM, EVERY HOUR
     Route: 042
     Dates: start: 20220611, end: 20220611
  3. CHLORPROMAZINE [Suspect]
     Active Substance: CHLORPROMAZINE
     Indication: Hiccups
     Dosage: 25 MILLIGRAM, (TOTAL)
     Route: 042
     Dates: start: 20220611, end: 20220611
  4. NEFOPAM HYDROCHLORIDE [Suspect]
     Active Substance: NEFOPAM HYDROCHLORIDE
     Indication: Postoperative analgesia
     Dosage: UNK
     Route: 042
     Dates: start: 20220611, end: 20220611

REACTIONS (3)
  - Altered state of consciousness [Recovered/Resolved]
  - Somnolence [Recovered/Resolved]
  - Vomiting [Recovered/Resolved]

NARRATIVE: CASE EVENT DATE: 20220611
